FAERS Safety Report 4658438-3 (Version None)
Quarter: 2005Q2

REPORT INFORMATION
  Report Type: 
  Country: None (occurrence: None)
  Receive Date: 20050510
  Receipt Date: 20050510
  Transmission Date: 20051028
  Serious: Yes (Other)
  Sender: FDA-Public Use
  Company Number: None

PATIENT
  Age: 69 Year
  Sex: Male
  Weight: 71.2147 kg

DRUGS (1)
  1. ULTRA 300 [Suspect]
     Indication: COMPUTERISED TOMOGRAM
     Dosage: 80 CC

REACTIONS (2)
  - BLOOD PRESSURE SYSTOLIC INCREASED [None]
  - CHEST PAIN [None]
